FAERS Safety Report 10965032 (Version 1)
Quarter: 2015Q1

REPORT INFORMATION
  Report Type: Spontaneous
  Country: JP (occurrence: None)
  Receive Date: 20150326
  Receipt Date: 20150326
  Transmission Date: 20150721
  Serious: Yes (Hospitalization, Other)
  Sender: FDA-Public Use
  Company Number: 2015FE00930

PATIENT
  Age: 83 Year
  Sex: Male
  Weight: 50 kg

DRUGS (10)
  1. PROCYLIN (BERAPROST SODIUM) [Concomitant]
  2. RENIVACE (ENALAPRIL MALEATE) [Concomitant]
  3. RANMARK (DENOSUMAB) [Suspect]
     Active Substance: DENOSUMAB
     Indication: PRODUCT USED FOR UNKNOWN INDICATION
     Route: 058
     Dates: start: 20141027
  4. CASODEX (BICALUTAMIDE) ORODISPERSIBLE [Concomitant]
  5. GONAX (DEGARELIX) POWDER AND SOLVENT FOR SOLUTION FOR INJECTION, 80MG [Suspect]
     Active Substance: DEGARELIX
     Indication: PROSTATE CANCER
     Route: 058
     Dates: start: 20140528
  6. LYRICA [Concomitant]
     Active Substance: PREGABALIN
  7. GOSHAJINKIGAN (ACHYRANTHES BIDENTATA ROOT, ACONITUM SPP. PROCESSED ROOT, ALISMA PLANTAGO-AQUATICA VAR. ORIENTALE TUBER, CINNAMOMUM CASSIA BARK, CORNUS OFFICINALIS FRUIT, DIOSCOREA SPP. RHIZOME, PAEONIA X SUFFRUTICOSA ROOT BARK, PLANTAGO ASIATICA SEED, PORIA COCOS SCLEROTIUM, REHMANNIA GLUTINOSA ROOT) [Concomitant]
  8. RANMARK (DENOSUMAB) [Suspect]
     Active Substance: DENOSUMAB
     Indication: METASTASES TO BONE
     Route: 058
     Dates: start: 20141027
  9. METHYCOBAL (MECOBALAMIN) [Concomitant]
  10. TRYPTANOL /00002202/ (AMITRIPTYLINE HYDROCHLORIDE) [Concomitant]

REACTIONS (7)
  - Anaemia [None]
  - Malaise [None]
  - Fatigue [None]
  - Abasia [None]
  - Infection [None]
  - Asthenia [None]
  - Blood calcium decreased [None]

NARRATIVE: CASE EVENT DATE: 20150209
